FAERS Safety Report 16531513 (Version 1)
Quarter: 2019Q3

REPORT INFORMATION
  Report Type: Report from Study
  Country: US (occurrence: US)
  Receive Date: 20190705
  Receipt Date: 20190705
  Transmission Date: 20191004
  Serious: Yes (Hospitalization)
  Sender: FDA-Public Use
  Company Number: US-BRISTOL-MYERS SQUIBB COMPANY-BMS-2019-064486

PATIENT
  Age: 67 Year
  Sex: Female

DRUGS (17)
  1. DESYREL [Concomitant]
     Active Substance: TRAZODONE HYDROCHLORIDE
     Indication: DEPRESSION
     Dosage: 50 MILLIGRAM, QD
     Route: 048
  2. NIVOLUMAB [Suspect]
     Active Substance: NIVOLUMAB
     Indication: NON-SMALL CELL LUNG CANCER
     Dosage: 240 MILLIGRAM
     Route: 042
  3. PROTONIX [OMEPRAZOLE] [Concomitant]
     Active Substance: OMEPRAZOLE
     Indication: GASTROOESOPHAGEAL REFLUX DISEASE
     Dosage: 20 MILLIGRAM, QD
     Route: 048
  4. SENNOKOTT [Concomitant]
     Indication: PROPHYLAXIS
     Dosage: 8.6 MILLIGRAM PRN
     Route: 048
  5. AZACITIDINE. [Suspect]
     Active Substance: AZACITIDINE
     Indication: NON-SMALL CELL LUNG CANCER
     Dosage: 76.5 MILLIGRAM
     Route: 058
     Dates: start: 20190520
  6. ZOFRAN [Concomitant]
     Active Substance: ONDANSETRON HYDROCHLORIDE
     Indication: NAUSEA
     Dosage: 8 MILLIGRAM, QID PRN
     Route: 048
  7. FOLIC ACID. [Concomitant]
     Active Substance: FOLIC ACID
     Indication: PRODUCT USED FOR UNKNOWN INDICATION
     Dosage: 1 MILLIGRAM, QD
     Route: 048
  8. NEURONTIN [Concomitant]
     Active Substance: GABAPENTIN
     Indication: PRODUCT USED FOR UNKNOWN INDICATION
     Dosage: 300 MILLIGRAM, BID AND TWO TABS AT NIGHT
     Route: 048
  9. HYZAAR [Concomitant]
     Active Substance: HYDROCHLOROTHIAZIDE\LOSARTAN POTASSIUM
     Indication: PAIN
     Dosage: 15 MILLIGRAM Q3-4
     Route: 048
  10. ATARAX [HYDROXYZINE EMBONATE] [Concomitant]
     Indication: PRURITUS
     Dosage: 1 MILLIGRAM, TID PRN
     Route: 048
  11. COMPAZINE [Concomitant]
     Active Substance: PROCHLORPERAZINE MALEATE
     Indication: NAUSEA
     Dosage: 10 MILLIGRAM, QID PRN
     Route: 048
  12. PRAVACHOL [Concomitant]
     Active Substance: PRAVASTATIN SODIUM
     Indication: BLOOD CHOLESTEROL
     Dosage: 40 MILLIGRAM, QD
     Route: 048
  13. FENTANYL TRANSDERMAL SYSTEM [Concomitant]
     Active Substance: FENTANYL
     Indication: PAIN
     Dosage: 1 DOSAGE FORM=1 PATCH EVERY 72 HOUR, 12 MCG/HR
     Route: 065
  14. ENTINOSTAT [Suspect]
     Active Substance: ENTINOSTAT
     Indication: NON-SMALL CELL LUNG CANCER
     Dosage: 5 MILLIGRAM
     Route: 048
     Dates: start: 20190520
  15. CALCIUM CARBONATE/VITAMIN D3 [Concomitant]
     Active Substance: CALCIUM CARBONATE\CHOLECALCIFEROL
     Indication: PRODUCT USED FOR UNKNOWN INDICATION
     Dosage: 600 MILLIGRAM (1500 MG) 400 UNIT TAB, BID
     Route: 048
  16. LEXAPRO [Concomitant]
     Active Substance: ESCITALOPRAM OXALATE
     Indication: DEPRESSION
     Dosage: 40 MILLIGRAM, QD
     Route: 048
  17. MIRALAX [Concomitant]
     Active Substance: POLYETHYLENE GLYCOL 3350
     Indication: PROPHYLAXIS
     Dosage: 1 DOSAGE FORM= PKG, QD
     Route: 048

REACTIONS (3)
  - Nausea [Recovered/Resolved]
  - Dehydration [Recovered/Resolved]
  - Vomiting [Recovered/Resolved]

NARRATIVE: CASE EVENT DATE: 20190528
